FAERS Safety Report 19221958 (Version 1)
Quarter: 2021Q2

REPORT INFORMATION
  Report Type: Report from Study
  Country: US (occurrence: US)
  Receive Date: 20210506
  Receipt Date: 20210506
  Transmission Date: 20210717
  Serious: Yes (Congenital Anomaly, Other)
  Sender: FDA-Public Use
  Company Number: US-TAKEDA-2018TUS017921

PATIENT
  Age: 7 Day
  Sex: Female

DRUGS (4)
  1. IMURAN [Concomitant]
     Active Substance: AZATHIOPRINE
     Indication: CROHN^S DISEASE
     Dosage: 10 MG, QD
     Route: 048
     Dates: start: 20170202, end: 20170911
  2. CAFFEINE. [Concomitant]
     Active Substance: CAFFEINE
     Dosage: UNK UNK, 1/WEEK
     Route: 048
     Dates: start: 20170202, end: 20170911
  3. DHA [Concomitant]
     Active Substance: DIETARY SUPPLEMENT
     Dosage: UNK UNK, QD
     Route: 048
     Dates: start: 20170203, end: 20170911
  4. VEDOLIZUMAB [Suspect]
     Active Substance: VEDOLIZUMAB
     Indication: CROHN^S DISEASE
     Dosage: 300 MILLIGRAM
     Route: 063
     Dates: start: 20161115, end: 20171017

REACTIONS (2)
  - Foetal exposure during pregnancy [Unknown]
  - Developmental hip dysplasia [Unknown]

NARRATIVE: CASE EVENT DATE: 20171116
